FAERS Safety Report 8008737-2 (Version None)
Quarter: 2011Q4

REPORT INFORMATION
  Report Type: 
  Country: None (occurrence: None)
  Receive Date: 20111227
  Receipt Date: 20111219
  Transmission Date: 20120403
  Serious: Yes (Hospitalization)
  Sender: FDA-Public Use
  Company Number: IT-ASTRAZENECA-2011SE73217

PATIENT
  Age: 28159 Day
  Sex: Male

DRUGS (2)
  1. MERREM [Suspect]
     Indication: ANTIBIOTIC THERAPY
     Route: 042
     Dates: start: 20111107, end: 20111110
  2. MERREM [Suspect]
     Route: 042

REACTIONS (1)
  - PLATELET COUNT DECREASED [None]
